FAERS Safety Report 5075637-X (Version None)
Quarter: 2006Q3

REPORT INFORMATION
  Report Type: 
  Country: None (occurrence: None)
  Receive Date: 20060809
  Receipt Date: 20050720
  Transmission Date: 20061208
  Serious: No
  Sender: FDA-Public Use
  Company Number: US-AMGEN-KDL143667

PATIENT
  Age: 72 Year
  Sex: Female
  Weight: 68.1 kg

DRUGS (6)
  1. PROCRIT [Suspect]
     Indication: ANAEMIA OF MALIGNANT DISEASE
     Route: 058
     Dates: start: 20031001
  2. NEXIUM [Concomitant]
  3. LASIX [Concomitant]
  4. ALDACTONE [Concomitant]
  5. IRON [Concomitant]
  6. DIABETIC MEDICATION NOS [Concomitant]

REACTIONS (1)
  - INJECTION SITE BRUISING [None]
